FAERS Safety Report 4667080-X (Version None)
Quarter: 2005Q2

REPORT INFORMATION
  Report Type: 
  Country: None (occurrence: None)
  Receive Date: 20050520
  Receipt Date: 20050207
  Transmission Date: 20051028
  Serious: Yes (Other)
  Sender: FDA-Public Use
  Company Number: PHBS2005BE02084

PATIENT
  Age: 45 Year
  Sex: Female

DRUGS (5)
  1. ZOMETA [Suspect]
     Dosage: 4 MG, QMO
     Route: 065
     Dates: start: 20020919, end: 20041213
  2. FELDENE [Concomitant]
     Route: 048
     Dates: start: 20020701
  3. CIPRAMIL [Concomitant]
     Dates: start: 20020919, end: 20021017
  4. EFFEXOR [Concomitant]
     Dates: start: 20020919
  5. NSAID'S [Concomitant]
     Dates: start: 20030220, end: 20030612

REACTIONS (5)
  - BONE LESION [None]
  - OSTEITIS [None]
  - OSTEONECROSIS [None]
  - TOOTH DISORDER [None]
  - WOUND DEBRIDEMENT [None]
